FAERS Safety Report 17158339 (Version 3)
Quarter: 2020Q1

REPORT INFORMATION
  Report Type: Spontaneous
  Country: US (occurrence: US)
  Receive Date: 20191216
  Receipt Date: 20200124
  Transmission Date: 20200409
  Serious: No
  Sender: FDA-Public Use
  Company Number: US-PFIZER INC-2019537876

PATIENT
  Age: 89 Year
  Sex: Male
  Weight: 73.48 kg

DRUGS (3)
  1. VYNDAMAX [Suspect]
     Active Substance: TAFAMIDIS
     Indication: AMYLOIDOSIS
     Dosage: 61 MG, DAILY
     Route: 048
     Dates: start: 20191116
  2. POTASSIUM CHLORIDE. [Concomitant]
     Active Substance: POTASSIUM CHLORIDE
     Indication: AMYLOIDOSIS
     Dosage: UNK
     Dates: start: 20191221
  3. TORSEMIDE. [Concomitant]
     Active Substance: TORSEMIDE
     Indication: AMYLOIDOSIS
     Dosage: 10 MG, UNK
     Dates: start: 20190801

REACTIONS (1)
  - Blood potassium increased [Not Recovered/Not Resolved]
